FAERS Safety Report 9170485 (Version 1)
Quarter: 2013Q1

REPORT INFORMATION
  Report Type: Spontaneous
  Country: SE (occurrence: None)
  Receive Date: 20130311
  Receipt Date: 20130311
  Transmission Date: 20140127
  Serious: Yes (Hospitalization)
  Sender: FDA-Public Use
  Company Number: 2013-03607

PATIENT
  Age: 54 Year
  Sex: Male

DRUGS (9)
  1. PARACETAMOL (UNKNOWN) (PARACETAMOL) UNK, UNKUNK [Suspect]
     Indication: PRODUCT USED FOR UNKNOWN INDICATION
     Dosage: 5 G, TOTAL, ORAL
     Route: 048
     Dates: start: 20121129, end: 20121129
  2. ACETYLSALICYLIC ACID [Suspect]
     Dosage: 15 G, TOTAL, ORAL
     Route: 048
  3. OMEPRAZOLE (OMEPRAZOLE) [Concomitant]
  4. BISOPROLOL (BISOPROLOL) [Concomitant]
  5. TRAMADOL (TRAMADOL) [Concomitant]
  6. TROMBYL (ACETYLSALICYLIC ACID) [Concomitant]
  7. SPIRONOLAKTON (SPIRONOLACTONE) [Concomitant]
  8. MOVICOL [Concomitant]
  9. LIPITOR [Concomitant]

REACTIONS (2)
  - Toxicity to various agents [None]
  - Nausea [None]
